FAERS Safety Report 19922993 (Version 6)
Quarter: 2022Q1

REPORT INFORMATION
  Report Type: Report from Study
  Country: US (occurrence: US)
  Receive Date: 20211005
  Receipt Date: 20220214
  Transmission Date: 20220423
  Serious: Yes (Hospitalization, Other)
  Sender: FDA-Public Use
  Company Number: US-JNJFOC-20210950290

PATIENT
  Age: 82 Year
  Sex: Female
  Weight: 100 kg

DRUGS (4)
  1. SELEXIPAG [Suspect]
     Active Substance: SELEXIPAG
     Indication: Pulmonary hypertension
     Route: 048
  2. SELEXIPAG [Suspect]
     Active Substance: SELEXIPAG
     Route: 048
  3. SELEXIPAG [Suspect]
     Active Substance: SELEXIPAG
     Route: 048
  4. SILDENAFIL CITRATE [Concomitant]
     Active Substance: SILDENAFIL CITRATE

REACTIONS (7)
  - Neuropathy peripheral [Not Recovered/Not Resolved]
  - Intestinal obstruction [Unknown]
  - Pulmonary oedema [Unknown]
  - Hypervolaemia [Unknown]
  - Flushing [Not Recovered/Not Resolved]
  - Constipation [Unknown]
  - Vascular rupture [Unknown]

NARRATIVE: CASE EVENT DATE: 20211206
